FAERS Safety Report 5284498-5 (Version None)
Quarter: 2007Q1

REPORT INFORMATION
  Report Type: 
  Country: None (occurrence: None)
  Receive Date: 20061204
  Receipt Date: 20060303
  Transmission Date: 20070707
  Serious: No
  Sender: FDA-Public Use
  Company Number: 2006UW03725

PATIENT
  Sex: Female

DRUGS (1)
  1. CEFOTAN [Suspect]
     Indication: PROPHYLAXIS
     Dosage: 2 G ONCE

REACTIONS (1)
  - HAEMOLYTIC ANAEMIA [None]
